FAERS Safety Report 7448949-X (Version None)
Quarter: 2011Q2

REPORT INFORMATION
  Report Type: 
  Country: None (occurrence: None)
  Receive Date: 20110429
  Receipt Date: 20110428
  Transmission Date: 20111010
  Serious: Yes (Hospitalization)
  Sender: FDA-Public Use
  Company Number: FR-AMGEN-FRASP2011021518

PATIENT
  Age: 75 Year
  Sex: Male

DRUGS (9)
  1. CARDENSIEL [Concomitant]
     Dosage: 2.5 MG, QD
  2. TRIATEC                            /00116401/ [Concomitant]
     Dosage: 2.5 MG, QD
  3. NEXIUM [Concomitant]
     Dosage: 40 MG, QD
  4. RIVOTRIL [Concomitant]
     Dosage: 5 GTT, UNK
  5. TRILEPTAL FILM-COATED TABLET [Concomitant]
     Dosage: 600 MG, QD
  6. SOLUPRED                           /00016201/ [Concomitant]
     Dosage: 20 MG, UNK
  7. ALIMTA [Suspect]
     Dosage: 400 MG/M2, ONE TIME DOSE
     Route: 042
  8. NEULASTA [Suspect]
     Indication: CHEMOTHERAPY
     Dosage: 6 MG, ONE TIME DOSE
     Route: 042
     Dates: start: 20100910
  9. ACIDE FOLIQUE [Concomitant]

REACTIONS (3)
  - THROMBOCYTOPENIA [None]
  - SEGMENTED HYALINISING VASCULITIS [None]
  - TRANSAMINASES INCREASED [None]
